FAERS Safety Report 7742186-7 (Version None)
Quarter: 2011Q3

REPORT INFORMATION
  Report Type: 
  Country: None (occurrence: None)
  Receive Date: 20110912
  Receipt Date: 20110908
  Transmission Date: 20111222
  Serious: Yes (Death, Hospitalization, Other)
  Sender: FDA-Public Use
  Company Number: PHHY2011GR38463

PATIENT
  Sex: Male
  Weight: 62 kg

DRUGS (3)
  1. ZOMETA [Suspect]
     Indication: LUNG NEOPLASM MALIGNANT
     Dosage: 4 MG, UNK
     Route: 042
     Dates: start: 20100208, end: 20110315
  2. TARCEVA [Concomitant]
     Indication: LUNG NEOPLASM MALIGNANT
     Dosage: 100 MG, UNK
     Dates: start: 20100630, end: 20110315
  3. AVASTIN [Concomitant]
     Indication: LUNG NEOPLASM MALIGNANT
     Dosage: 1000 MG, UNK
     Dates: start: 20100208, end: 20110315

REACTIONS (3)
  - RESPIRATORY TRACT INFECTION [None]
  - DEATH [None]
  - RESPIRATORY FAILURE [None]
